FAERS Safety Report 7969094-0 (Version None)
Quarter: 2011Q4

REPORT INFORMATION
  Report Type: 
  Country: None (occurrence: None)
  Receive Date: 20111209
  Receipt Date: 20111202
  Transmission Date: 20120403
  Serious: Yes (Hospitalization)
  Sender: FDA-Public Use
  Company Number: PHHO2011GB14121

PATIENT
  Sex: Male
  Weight: 89 kg

DRUGS (11)
  1. RAMIPRIL [Concomitant]
     Dosage: 10 MG, QD
     Route: 048
     Dates: start: 20040101, end: 20110818
  2. FUROSEMIDE [Concomitant]
     Dosage: 40 MG, QD
     Route: 048
     Dates: start: 19930101, end: 20110818
  3. VALSARTAN [Suspect]
     Indication: CARDIAC FAILURE CHRONIC
     Dosage: NO TREATMENT
  4. ISMN [Concomitant]
     Dosage: 20 MG, QD
     Route: 048
     Dates: start: 19930101
  5. ACETYLSALICYLIC ACID SRT [Suspect]
     Indication: MYOCARDIAL ISCHAEMIA
     Dosage: 75 MG, QD
     Route: 048
     Dates: start: 19930101, end: 20110814
  6. CLOPIDOGREL SANDOZ [Suspect]
     Dosage: 75 MG, QD
     Route: 048
     Dates: start: 20080101, end: 20110814
  7. DOXAZOSIN MESYLATE [Concomitant]
     Dosage: 2 MG, QD
     Route: 048
     Dates: end: 20110818
  8. ENALAPRIL MALEATE [Suspect]
     Indication: CARDIAC FAILURE CHRONIC
     Dosage: NO TREATMENT
  9. VALSARTAN [Suspect]
     Indication: CARDIAC FAILURE CHRONIC
     Dosage: 100 MG, BID
     Dates: start: 20110803, end: 20110817
  10. BLINDED NO TREATMENT RECEIVED [Suspect]
     Indication: CARDIAC FAILURE CHRONIC
     Dosage: NO TREATMENT
  11. NEBIVOLOL HCL [Concomitant]
     Dosage: 10 MG, QD
     Route: 048
     Dates: start: 20100401, end: 20110818

REACTIONS (2)
  - EPISTAXIS [None]
  - DEMENTIA [None]
